FAERS Safety Report 9835614 (Version 1)
Quarter: 2014Q1

REPORT INFORMATION
  Report Type: Spontaneous
  Country: US (occurrence: US)
  Receive Date: 20140122
  Receipt Date: 20140122
  Transmission Date: 20141002
  Serious: Yes (Hospitalization)
  Sender: FDA-Public Use
  Company Number: US-B.I. PHARMACEUTICALS,INC./RIDGEFIELD-2014-BI-02028BP

PATIENT
  Age: 66 Year
  Sex: Male
  Weight: 120 kg

DRUGS (15)
  1. AGGRENOX [Suspect]
     Indication: CEREBROVASCULAR ACCIDENT PROPHYLAXIS
     Dosage: STRENGTH: 25 MG / 200 MG; DAILY DOSE: 50 MG/ 400 MG
     Route: 048
     Dates: start: 201210
  2. CILOSTAZOL [Concomitant]
     Indication: HYPERTENSION
     Dosage: 100 MG
     Route: 048
  3. LEVOTHYROXINE [Concomitant]
     Indication: HYPOTHYROIDISM
     Dosage: 175 MCG
     Route: 048
  4. CRESTOR [Concomitant]
     Indication: BLOOD CHOLESTEROL INCREASED
     Dosage: 10 MG
     Route: 048
  5. LEVOTHYRONINE [Concomitant]
     Indication: HYPOTHYROIDISM
     Dosage: 5 MCG
     Route: 048
  6. GABAPENTIN [Concomitant]
     Indication: NEURALGIA
     Dosage: FORMULATION: CAPLET
     Route: 048
  7. AMLODIPINE [Concomitant]
     Indication: HYPERTENSION
     Dosage: 5 MG
     Route: 048
  8. FUROSEMIDE [Concomitant]
     Indication: FLUID RETENTION
     Dosage: 20 MG
     Route: 048
  9. LANTUS INSULIN [Concomitant]
     Indication: DIABETES MELLITUS
     Dosage: FORMULATION:SUBCUTANEOUS
     Route: 058
  10. NOVOLOG INSULIN [Concomitant]
     Indication: DIABETES MELLITUS
     Dosage: FORMULATION: SUBCUTANEOUS
     Route: 058
  11. NITROBID PATCH [Concomitant]
     Indication: POOR PERIPHERAL CIRCULATION
     Dosage: FORMULATION: PATCH
     Route: 061
  12. TRAVATAN EYE DROPS [Concomitant]
     Indication: DIABETIC RETINOPATHY
  13. MULTIVITAMIN [Concomitant]
     Route: 048
  14. DOXAZOSIN [Concomitant]
     Indication: HYPERTENSION
     Dosage: 4 MG
     Route: 048
  15. CARVEDILOL [Concomitant]
     Indication: HYPERTENSION
     Dosage: 12.5 MG
     Route: 048

REACTIONS (11)
  - Diabetic foot [Recovered/Resolved]
  - Lethargy [Not Recovered/Not Resolved]
  - Heart rate decreased [Recovered/Resolved]
  - Drug hypersensitivity [Recovered/Resolved]
  - Implant site infection [Not Recovered/Not Resolved]
  - Blood potassium increased [Recovered/Resolved]
  - Blood creatinine increased [Recovered/Resolved]
  - Thyroid neoplasm [Not Recovered/Not Resolved]
  - Scrotal swelling [Recovered/Resolved]
  - Genital rash [Recovered/Resolved]
  - Fall [Recovered/Resolved]
